FAERS Safety Report 8604851-9 (Version None)
Quarter: 2012Q3

REPORT INFORMATION
  Report Type: 
  Country: None (occurrence: None)
  Receive Date: 20120820
  Receipt Date: 20120808
  Transmission Date: 20120928
  Serious: Yes (Other)
  Sender: FDA-Public Use
  Company Number: US-JNJFOC-20120805262

PATIENT
  Sex: Female

DRUGS (1)
  1. TERAZOL 1 [Suspect]
     Indication: FUNGAL INFECTION
     Dosage: FOR LAST 3 YEARS
     Route: 065

REACTIONS (1)
  - SURGERY [None]
